FAERS Safety Report 21091636 (Version 2)
Quarter: 2022Q3

REPORT INFORMATION
  Report Type: Spontaneous
  Country: US (occurrence: US)
  Receive Date: 20220717
  Receipt Date: 20220718
  Transmission Date: 20221026
  Serious: No
  Sender: FDA-Public Use
  Company Number: US-JNJFOC-20220717956

PATIENT
  Age: 73 Year
  Sex: Female

DRUGS (4)
  1. OPSUMIT [Suspect]
     Active Substance: MACITENTAN
     Indication: Product used for unknown indication
     Dosage: TAKE 1 TABLET BY MOUTH
     Route: 048
     Dates: start: 20220314
  2. DIFLUCAN [Interacting]
     Active Substance: FLUCONAZOLE
     Indication: Infection
     Route: 065
  3. AZITHROMYCIN [Concomitant]
     Active Substance: AZITHROMYCIN
     Indication: Infection
  4. PREDNISONE [Concomitant]
     Active Substance: PREDNISONE
     Indication: Infection

REACTIONS (6)
  - Candida infection [Unknown]
  - Malaise [Unknown]
  - Dizziness [Unknown]
  - Muscle spasms [Unknown]
  - Drug interaction [Unknown]
  - Infection [Unknown]
